FAERS Safety Report 16542710 (Version 4)
Quarter: 2022Q1

REPORT INFORMATION
  Report Type: Other
  Country: US (occurrence: None)
  Receive Date: 20190709
  Receipt Date: 20220131
  Transmission Date: 20220423
  Serious: Yes (Other)
  Sender: FDA-Public Use
  Company Number: US-ROCHE-2350891

PATIENT
  Age: 64 Year
  Sex: Female

DRUGS (3)
  1. ESBRIET [Suspect]
     Active Substance: PIRFENIDONE
     Indication: Idiopathic pulmonary fibrosis
     Route: 048
     Dates: start: 20161216
  2. ESBRIET [Suspect]
     Active Substance: PIRFENIDONE
     Indication: Idiopathic pulmonary fibrosis
     Dosage: TABLETS BY MOUTH 3 TIMES A DAY
     Route: 048
  3. ESBRIET [Suspect]
     Active Substance: PIRFENIDONE
     Indication: Pulmonary fibrosis
     Dosage: TAKE 2 TABLET(S) BY MOUTH 3 TIMES A DAY WITH FOOD
     Route: 048

REACTIONS (3)
  - Supraventricular tachycardia [Unknown]
  - Supraventricular tachycardia [Unknown]
  - Polyp [Unknown]

NARRATIVE: CASE EVENT DATE: 20190601
